FAERS Safety Report 10505164 (Version 3)
Quarter: 2014Q4

REPORT INFORMATION
  Report Type: Other
  Country: JP (occurrence: JP)
  Receive Date: 20141008
  Receipt Date: 20141103
  Transmission Date: 20150528
  Serious: Yes (Hospitalization)
  Sender: FDA-Public Use
  Company Number: JP-CUBIST PHARMACEUTICALS, INC.-2014CBST001286

PATIENT

DRUGS (8)
  1. CUBICIN [Suspect]
     Active Substance: DAPTOMYCIN
     Indication: STAPHYLOCOCCAL INFECTION
     Dosage: 4.08 MG/KG, ONCE A DAY
     Route: 042
     Dates: start: 20140516, end: 20140519
  2. CUBICIN [Suspect]
     Active Substance: DAPTOMYCIN
     Dosage: 245 MG, ONCE A DAY
     Route: 042
     Dates: start: 20140516, end: 20140519
  3. BAKTAR [Concomitant]
     Active Substance: SULFAMETHOXAZOLE\TRIMETHOPRIM
     Indication: PRODUCT USED FOR UNKNOWN INDICATION
     Dosage: 2 DF, BID
     Route: 048
     Dates: start: 20140507, end: 20140515
  4. MAGLAX [Concomitant]
     Active Substance: MAGNESIUM OXIDE
     Indication: CONSTIPATION
     Dosage: 500 MG, BID
     Route: 048
     Dates: start: 20140124, end: 20140615
  5. ISOTONIC SODIUM CHLORIDE SOLUTION [Concomitant]
     Active Substance: SODIUM CHLORIDE
     Indication: PRODUCT USED FOR UNKNOWN INDICATION
     Dosage: UNK UNK, UNK
     Route: 041
     Dates: start: 20140516, end: 20140523
  6. CUBICIN [Suspect]
     Active Substance: DAPTOMYCIN
     Dosage: 5.83 MG/KG, ONCE A DAY
     Route: 042
     Dates: start: 20140520, end: 20140523
  7. PANTOSIN [Concomitant]
     Active Substance: PANTETHINE
     Indication: CONSTIPATION
     Dosage: 1 DF, BID
     Route: 048
     Dates: start: 20140124, end: 20140615
  8. CUBICIN [Suspect]
     Active Substance: DAPTOMYCIN
     Dosage: 350 MG, ONCE A DAY
     Route: 042
     Dates: start: 20140520, end: 20140523

REACTIONS (6)
  - Dermatitis contact [Recovered/Resolved]
  - Urticaria [Recovered/Resolved]
  - Liver function test abnormal [Recovered/Resolved]
  - Face oedema [Recovered/Resolved]
  - Pharyngeal oedema [Recovered/Resolved]
  - Rash [Recovered/Resolved]

NARRATIVE: CASE EVENT DATE: 20140524
